FAERS Safety Report 7546788-2 (Version None)
Quarter: 2011Q2

REPORT INFORMATION
  Report Type: 
  Country: None (occurrence: None)
  Receive Date: 20110614
  Receipt Date: 20110607
  Transmission Date: 20111010
  Serious: Yes (Other)
  Sender: FDA-Public Use
  Company Number: US-ROCHE-776917

PATIENT
  Sex: Female

DRUGS (1)
  1. CAPECITABINE [Suspect]
     Route: 048
     Dates: start: 20110404

REACTIONS (9)
  - HYPOAESTHESIA [None]
  - COLITIS [None]
  - HYPERAESTHESIA [None]
  - ERYTHEMA [None]
  - CONSTIPATION [None]
  - FLATULENCE [None]
  - ACTIVITIES OF DAILY LIVING IMPAIRED [None]
  - DIARRHOEA [None]
  - RASH ERYTHEMATOUS [None]
